FAERS Safety Report 6078583-8 (Version None)
Quarter: 2009Q1

REPORT INFORMATION
  Report Type: 
  Country: None (occurrence: None)
  Receive Date: 20090212
  Receipt Date: 20090205
  Transmission Date: 20090719
  Serious: Yes (Death)
  Sender: FDA-Public Use
  Company Number: US025425

PATIENT
  Age: 38 Year
  Sex: Male

DRUGS (4)
  1. MODAFINIL [Suspect]
     Indication: NARCOLEPSY
     Dosage: 400 MG QD ORAL
     Route: 048
     Dates: start: 20070101, end: 20081211
  2. XYREM [Suspect]
     Indication: WAXY FLEXIBILITY
     Dosage: 6 G QD ORAL
     Route: 048
     Dates: start: 20080915
  3. ENBREL [Suspect]
     Indication: ANKYLOSING SPONDYLITIS
     Dosage: 7.1429 MG DAILY (50MG BY WEEK) INTRAVENOUS
     Route: 042
     Dates: start: 20060101
  4. APPROVEL [Concomitant]

REACTIONS (4)
  - ABDOMINAL PAIN UPPER [None]
  - ANKYLOSING SPONDYLITIS [None]
  - HYPERHIDROSIS [None]
  - WAXY FLEXIBILITY [None]
